FAERS Safety Report 7811199-9 (Version None)
Quarter: 2011Q4

REPORT INFORMATION
  Report Type: 
  Country: None (occurrence: None)
  Receive Date: 20111013
  Receipt Date: 20110930
  Transmission Date: 20120403
  Serious: Yes (Hospitalization)
  Sender: FDA-Public Use
  Company Number: US-BAYER-2011-021723

PATIENT
  Sex: Female
  Weight: 101.59 kg

DRUGS (5)
  1. BENADRYL [Concomitant]
     Indication: MULTIPLE ALLERGIES
     Dosage: 1 DF, PRN
     Route: 048
  2. RETIN-A [Concomitant]
     Dosage: UNK UNK, QD
     Route: 061
  3. YASMIN [Suspect]
     Dosage: UNK
     Dates: start: 20060101, end: 20080101
  4. AMOXICILLIN [Concomitant]
     Dosage: UNK
     Dates: start: 20090301
  5. PROAIR HFA [Concomitant]
     Dosage: 1 PUFF(S), PRN
     Route: 055

REACTIONS (5)
  - GALLBLADDER DISORDER [None]
  - PAIN [None]
  - INJURY [None]
  - CHOLECYSTITIS CHRONIC [None]
  - CHOLELITHIASIS [None]
